FAERS Safety Report 11093958 (Version 2)
Quarter: 2015Q2

REPORT INFORMATION
  Report Type: Spontaneous
  Country: CZ (occurrence: CZ)
  Receive Date: 20150506
  Receipt Date: 20150616
  Transmission Date: 20150821
  Serious: Yes (Other)
  Sender: FDA-Public Use
  Company Number: CZ-SA-2015SA056169

PATIENT
  Sex: Female
  Weight: 47 kg

DRUGS (14)
  1. LITHIUM. [Concomitant]
     Active Substance: LITHIUM
  2. RIVOTRIL [Concomitant]
     Active Substance: CLONAZEPAM
     Dosage: 2MG 3X1/2MG (NEWLY INITIATED)
  3. IMURAN [Concomitant]
     Active Substance: AZATHIOPRINE
  4. AUBAGIO [Suspect]
     Active Substance: TERIFLUNOMIDE
     Indication: MULTIPLE SCLEROSIS
     Route: 048
     Dates: start: 20150324, end: 20150420
  5. AURORIX [Concomitant]
     Active Substance: MOCLOBEMIDE
     Dates: start: 20150310
  6. XANAX [Concomitant]
     Active Substance: ALPRAZOLAM
  7. BACLOFEN. [Concomitant]
     Active Substance: BACLOFEN
     Dosage: 1-0-2 TBL DAILY?25MG 1-1-1 TBL
  8. DENIBAN [Concomitant]
     Active Substance: AMISULPRIDE
  9. VIGANTOL [Concomitant]
  10. METHOTREXATE [Concomitant]
     Active Substance: METHOTREXATE
     Dosage: 2,5MG 3X WEEKLY
  11. PREDNISON [Concomitant]
     Active Substance: PREDNISONE
     Dosage: 5 MG
  12. TRENTAL [Concomitant]
     Active Substance: PENTOXIFYLLINE
  13. VITAMIN D [Concomitant]
     Active Substance: CHOLECALCIFEROL
  14. COPAXONE [Concomitant]
     Active Substance: GLATIRAMER ACETATE

REACTIONS (7)
  - Condition aggravated [Recovered/Resolved]
  - Vertigo [Recovered/Resolved]
  - Formication [Recovered/Resolved]
  - Coordination abnormal [Recovered/Resolved]
  - Face oedema [Recovered/Resolved]
  - Feeling abnormal [Recovered/Resolved]
  - Asthenia [Recovered/Resolved]

NARRATIVE: CASE EVENT DATE: 201504
